FAERS Safety Report 9365114 (Version 3)
Quarter: 2013Q3

REPORT INFORMATION
  Report Type: Spontaneous
  Country: US (occurrence: US)
  Receive Date: 20130624
  Receipt Date: 20130715
  Transmission Date: 20140515
  Serious: Yes (Hospitalization)
  Sender: FDA-Public Use
  Company Number: US-GILEAD-2013-0077523

PATIENT
  Sex: Male

DRUGS (3)
  1. LETAIRIS [Suspect]
     Indication: PULMONARY HYPERTENSION
     Dates: start: 20130524
  2. LETAIRIS [Suspect]
     Indication: CONNECTIVE TISSUE DISORDER
     Dosage: 5 MG, QD
  3. WARFARIN [Concomitant]

REACTIONS (4)
  - Pneumonia [Unknown]
  - Renal failure [Unknown]
  - Diabetes mellitus inadequate control [Unknown]
  - Cardiac failure congestive [Unknown]
